FAERS Safety Report 7745224-0 (Version None)
Quarter: 2011Q3

REPORT INFORMATION
  Report Type: 
  Country: None (occurrence: None)
  Receive Date: 20110913
  Receipt Date: 20110902
  Transmission Date: 20111222
  Serious: Yes (Hospitalization)
  Sender: FDA-Public Use
  Company Number: FR-JNJFOC-20110903871

PATIENT
  Sex: Male

DRUGS (11)
  1. TRAMADOL HCL [Suspect]
     Indication: HYPERAESTHESIA
     Route: 048
     Dates: start: 20110505, end: 20110511
  2. LANTUS [Concomitant]
     Route: 065
  3. ASPIRIN [Concomitant]
     Route: 065
  4. CITALOPRAM HYDROBROMIDE [Concomitant]
     Route: 065
  5. HUMALOG [Concomitant]
     Route: 065
  6. LOVENOX [Concomitant]
     Route: 065
  7. CALCIDOSE VITAMINE D [Concomitant]
     Route: 065
  8. VALSARTAN [Concomitant]
     Route: 065
  9. DILTIAZEM HCL [Concomitant]
     Route: 065
  10. CLONAZEPAM [Concomitant]
     Route: 065
  11. TRAMADOL HCL [Suspect]
     Indication: HYPERAESTHESIA
     Route: 065
     Dates: start: 20110505, end: 20110511

REACTIONS (3)
  - CONFUSIONAL STATE [None]
  - HALLUCINATIONS, MIXED [None]
  - MINI MENTAL STATUS EXAMINATION ABNORMAL [None]
